FAERS Safety Report 21444993 (Version 1)
Quarter: 2022Q4

REPORT INFORMATION
  Report Type: Spontaneous
  Country: US (occurrence: None)
  Receive Date: 20221010
  Receipt Date: 20221010
  Transmission Date: 20230113
  Serious: No
  Sender: FDA-Public Use
  Company Number: None

PATIENT
  Age: 54 Year
  Sex: Female
  Weight: 118.39 kg

DRUGS (1)
  1. RASUVO [Suspect]
     Active Substance: METHOTREXATE SODIUM
     Indication: Psoriatic arthropathy
     Dosage: INJECT 25MG  (0.5ML)SUBCUTANEOUSLY ONCE  WEEKLY  ON THE SAME DAY  EACH WEEK AS DIRECTED?
     Route: 058
     Dates: start: 202202

REACTIONS (2)
  - Nasopharyngitis [None]
  - Therapy interrupted [None]
